FAERS Safety Report 20861029 (Version 8)
Quarter: 2024Q4

REPORT INFORMATION
  Report Type: Report from Study
  Country: CA (occurrence: CA)
  Receive Date: 20220523
  Receipt Date: 20241115
  Transmission Date: 20250115
  Serious: Yes (Other)
  Sender: TAKEDA
  Company Number: CA-TAKEDA-2020TUS041875

PATIENT
  Age: 47 Year
  Sex: Female

DRUGS (11)
  1. VEDOLIZUMAB [Suspect]
     Active Substance: VEDOLIZUMAB
     Indication: Crohn^s disease
     Dosage: 300 MILLIGRAM
  2. VEDOLIZUMAB [Suspect]
     Active Substance: VEDOLIZUMAB
     Dosage: 300 MILLIGRAM, Q4WEEKS
     Dates: start: 20201214
  3. VEDOLIZUMAB [Suspect]
     Active Substance: VEDOLIZUMAB
     Dosage: 300 MILLIGRAM, Q4WEEKS
  4. VEDOLIZUMAB [Suspect]
     Active Substance: VEDOLIZUMAB
     Dosage: 300 MILLIGRAM, Q4WEEKS
  5. VEDOLIZUMAB [Suspect]
     Active Substance: VEDOLIZUMAB
     Dosage: 300 MILLIGRAM, Q4WEEKS
  6. VEDOLIZUMAB [Suspect]
     Active Substance: VEDOLIZUMAB
     Dosage: 300 MILLIGRAM, Q4WEEKS
  7. VEDOLIZUMAB [Suspect]
     Active Substance: VEDOLIZUMAB
     Dosage: 300 MILLIGRAM, Q4WEEKS
  8. VEDOLIZUMAB [Suspect]
     Active Substance: VEDOLIZUMAB
     Dosage: 300 MILLIGRAM, Q4WEEKS
  9. VEDOLIZUMAB [Suspect]
     Active Substance: VEDOLIZUMAB
     Dosage: 300 MILLIGRAM, Q4WEEKS
  10. VEDOLIZUMAB [Suspect]
     Active Substance: VEDOLIZUMAB
     Dosage: 300 MILLIGRAM, Q4WEEKS
  11. VITAMIN D [Concomitant]
     Active Substance: VITAMIN D NOS
     Dosage: 4000 INTERNATIONAL UNIT, QD

REACTIONS (21)
  - Haematochezia [Unknown]
  - Therapeutic reaction time decreased [Not Recovered/Not Resolved]
  - Proctalgia [Unknown]
  - Asthenia [Unknown]
  - Frequent bowel movements [Unknown]
  - Insomnia [Unknown]
  - Defaecation urgency [Unknown]
  - Mucous stools [Unknown]
  - Illness [Not Recovered/Not Resolved]
  - Off label use [Unknown]
  - Blood pressure diastolic increased [Unknown]
  - Abdominal pain [Unknown]
  - Dizziness [Unknown]
  - Blood pressure increased [Unknown]
  - Constipation [Not Recovered/Not Resolved]
  - Dyspepsia [Unknown]
  - Arthralgia [Unknown]
  - Pyrexia [Not Recovered/Not Resolved]
  - Sinusitis [Unknown]
  - Cough [Unknown]
  - Fatigue [Unknown]

NARRATIVE: CASE EVENT DATE: 20201005
